FAERS Safety Report 4963476-7 (Version None)
Quarter: 2006Q1

REPORT INFORMATION
  Report Type: 
  Country: None (occurrence: None)
  Receive Date: 20060329
  Receipt Date: 20060126
  Transmission Date: 20060701
  Serious: Yes (Other)
  Sender: FDA-Public Use
  Company Number: 2005BH000096

PATIENT
  Age: 54 Year
  Sex: Female

DRUGS (3)
  1. IMMUNE GLOBULIN INTRAVENOUS (HUMAN) [Suspect]
     Indication: SELECTIVE IGG SUBCLASS DEFICIENCY
     Dosage: 21 GM;
  2. HEPARIN [Concomitant]
  3. WARFARIN [Concomitant]

REACTIONS (10)
  - CONVULSION [None]
  - HAEMORRHAGE [None]
  - HEADACHE [None]
  - MARROW HYPERPLASIA [None]
  - PHOTOPHOBIA [None]
  - SPEECH DISORDER [None]
  - SUPERIOR SAGITTAL SINUS THROMBOSIS [None]
  - THROMBOCYTHAEMIA [None]
  - TRANSVERSE SINUS THROMBOSIS [None]
  - VOMITING [None]
